FAERS Safety Report 16732430 (Version 1)
Quarter: 2019Q3

REPORT INFORMATION
  Report Type: Spontaneous
  Country: US (occurrence: US)
  Receive Date: 20190822
  Receipt Date: 20190822
  Transmission Date: 20191005
  Serious: No
  Sender: FDA-Public Use
  Company Number: US-JNJFOC-20190823840

PATIENT
  Sex: Female

DRUGS (1)
  1. TYLENOL [Suspect]
     Active Substance: ACETAMINOPHEN
     Indication: SLEEP DISORDER THERAPY
     Dosage: EVERY NIGHT
     Route: 048

REACTIONS (2)
  - Product use in unapproved indication [Unknown]
  - Therapeutic response unexpected [Unknown]
